FAERS Safety Report 8385744-1 (Version None)
Quarter: 2012Q2

REPORT INFORMATION
  Report Type: 
  Country: None (occurrence: None)
  Receive Date: 20120523
  Receipt Date: 20120523
  Transmission Date: 20120825
  Serious: Yes (Other)
  Sender: FDA-Public Use
  Company Number: None

PATIENT
  Age: 69 Year
  Sex: Female

DRUGS (1)
  1. PROLIA [Suspect]
     Dosage: 60MG Q6M SQ
     Route: 058
     Dates: start: 20120425

REACTIONS (2)
  - NIGHT SWEATS [None]
  - INFLUENZA [None]
